FAERS Safety Report 5005291-4 (Version None)
Quarter: 2006Q2

REPORT INFORMATION
  Report Type: 
  Country: None (occurrence: None)
  Receive Date: 20060518
  Receipt Date: 20060308
  Transmission Date: 20061013
  Serious: Yes (Hospitalization)
  Sender: FDA-Public Use
  Company Number: JP-JPN-A200600895

PATIENT
  Age: 17 Year
  Sex: Female
  Weight: 55 kg

DRUGS (2)
  1. PAXIL [Suspect]
     Indication: BULIMIA NERVOSA
     Dosage: 20MG PER DAY
     Route: 048
  2. PAXIL [Suspect]
     Dosage: 10MG PER DAY
     Route: 048
     Dates: start: 20060217, end: 20060310

REACTIONS (8)
  - DIARRHOEA [None]
  - DIZZINESS [None]
  - HYPOAESTHESIA [None]
  - INTENTIONAL OVERDOSE [None]
  - NAUSEA [None]
  - SEROTONIN SYNDROME [None]
  - SOMNOLENCE [None]
  - SUICIDE ATTEMPT [None]
